FAERS Safety Report 20747717 (Version 1)
Quarter: 2022Q2

REPORT INFORMATION
  Report Type: Spontaneous
  Country: US (occurrence: US)
  Receive Date: 20220425
  Receipt Date: 20220425
  Transmission Date: 20220721
  Serious: No
  Sender: FDA-Public Use
  Company Number: US-SA-SAC20220420000413

PATIENT
  Age: 64 Year
  Sex: Male

DRUGS (11)
  1. KEVZARA [Suspect]
     Active Substance: SARILUMAB
     Indication: Rheumatoid arthritis
     Dosage: 200 MG, QOW
     Route: 058
     Dates: start: 20210818
  2. ALLOPURINOL [Concomitant]
     Active Substance: ALLOPURINOL
  3. ATORVASTATIN [Concomitant]
     Active Substance: ATORVASTATIN
  4. BRILINTA [Concomitant]
     Active Substance: TICAGRELOR
  5. CARVEDILOL [Concomitant]
     Active Substance: CARVEDILOL
  6. CORLANOR [Concomitant]
     Active Substance: IVABRADINE HYDROCHLORIDE
  7. ENTRESTO [Concomitant]
     Active Substance: SACUBITRIL\VALSARTAN
  8. FAMOTIDINE [Concomitant]
     Active Substance: FAMOTIDINE
  9. METHOTREXATE [Concomitant]
     Active Substance: METHOTREXATE
  10. PANTOPRAZOLE [Concomitant]
     Active Substance: PANTOPRAZOLE
  11. SULFASALAZINE DELAYED-RELEASE [Concomitant]
     Active Substance: SULFASALAZINE

REACTIONS (3)
  - Injection site swelling [Not Recovered/Not Resolved]
  - Injection site pruritus [Not Recovered/Not Resolved]
  - Tooth extraction [Not Recovered/Not Resolved]

NARRATIVE: CASE EVENT DATE: 20220317
